FAERS Safety Report 6092214-2 (Version None)
Quarter: 2009Q1

REPORT INFORMATION
  Report Type: 
  Country: None (occurrence: None)
  Receive Date: 20090225
  Receipt Date: 20090213
  Transmission Date: 20090719
  Serious: Yes (Hospitalization)
  Sender: FDA-Public Use
  Company Number: SE-ELI_LILLY_AND_COMPANY-SE200902003560

PATIENT
  Age: 65 Year
  Sex: Male

DRUGS (11)
  1. BYETTA [Suspect]
     Indication: TYPE 2 DIABETES MELLITUS
     Dosage: 5 UG, 2/D
     Route: 065
     Dates: start: 20090203, end: 20090209
  2. NOVORAPID [Concomitant]
     Dosage: 10 IU, 3/D
     Route: 065
  3. METFORMIN [Concomitant]
     Dosage: UNK, UNKNOWN
     Route: 065
  4. LANTUS [Concomitant]
     Dosage: 20 UNITS IN THE MORNING AND 60 UNITS IN THE EVENING
     Route: 065
  5. DIOVAN [Concomitant]
     Dosage: UNK, UNKNOWN
     Route: 065
  6. AMLODIPIN                          /00972401/ [Concomitant]
     Dosage: UNK, UNKNOWN
     Route: 065
  7. LASIX-R [Concomitant]
     Dosage: UNK, UNKNOWN
     Route: 065
  8. METOPROLOL [Concomitant]
     Dosage: UNK, UNKNOWN
     Route: 065
  9. LONITEN [Concomitant]
     Dosage: UNK, UNKNOWN
     Route: 065
  10. SIMVASTATIN [Concomitant]
     Dosage: UNK, UNKNOWN
     Route: 065
  11. OMEPRAZOLE [Concomitant]
     Dosage: UNK, UNKNOWN
     Route: 065

REACTIONS (3)
  - ANAPHYLACTIC SHOCK [None]
  - DIARRHOEA [None]
  - NAUSEA [None]
